FAERS Safety Report 10526436 (Version 2)
Quarter: 2014Q4

REPORT INFORMATION
  Report Type: Report from Study
  Country: US (occurrence: US)
  Receive Date: 20141020
  Receipt Date: 20141104
  Transmission Date: 20150528
  Serious: Yes (Other)
  Sender: FDA-Public Use
  Company Number: US-AMGEN-USASL2014079718

PATIENT
  Age: 20 Year
  Sex: Male

DRUGS (1)
  1. ENBREL [Suspect]
     Active Substance: ETANERCEPT
     Indication: RHEUMATOID ARTHRITIS
     Dosage: 50 MG, QWK
     Route: 058
     Dates: start: 201407

REACTIONS (6)
  - Joint swelling [Unknown]
  - Arthralgia [Unknown]
  - Loss of consciousness [Unknown]
  - Pain in extremity [Unknown]
  - Injection site reaction [Unknown]
  - Injection site erythema [Unknown]
